FAERS Safety Report 6913944-3 (Version None)
Quarter: 2010Q3

REPORT INFORMATION
  Report Type: 
  Country: None (occurrence: None)
  Receive Date: 20100806
  Receipt Date: 20100806
  Transmission Date: 20110219
  Serious: No
  Sender: FDA-Public Use
  Company Number: None

PATIENT
  Age: 27 Year
  Sex: Male

DRUGS (1)
  1. LAMOTRIGINE [Suspect]
     Dosage: 100 MG BID PO
     Route: 048
     Dates: start: 20090812, end: 20091017

REACTIONS (1)
  - AGGRESSION [None]
